FAERS Safety Report 6273698-3 (Version None)
Quarter: 2009Q3

REPORT INFORMATION
  Report Type: 
  Country: None (occurrence: None)
  Receive Date: 20090720
  Receipt Date: 20090717
  Transmission Date: 20100115
  Serious: Yes (Other)
  Sender: FDA-Public Use
  Company Number: A0797508A

PATIENT
  Sex: Female

DRUGS (3)
  1. ALLI [Suspect]
     Route: 048
  2. BIRTH CONTROL [Concomitant]
  3. MULTI-VITAMIN [Concomitant]

REACTIONS (1)
  - THROMBOSIS [None]
